FAERS Safety Report 16458355 (Version 2)
Quarter: 2019Q3

REPORT INFORMATION
  Report Type: Spontaneous
  Country: BG (occurrence: BG)
  Receive Date: 20190620
  Receipt Date: 20190725
  Transmission Date: 20191004
  Serious: Yes (Other)
  Sender: FDA-Public Use
  Company Number: BG-009507513-1906BGR006519

PATIENT
  Age: 59 Year

DRUGS (5)
  1. KEYTRUDA [Suspect]
     Active Substance: PEMBROLIZUMAB
     Dosage: FIFTH DOSE
     Dates: start: 2019
  2. KEYTRUDA [Suspect]
     Active Substance: PEMBROLIZUMAB
     Dosage: SEVENTH DOSE
     Dates: start: 201907
  3. KEYTRUDA [Suspect]
     Active Substance: PEMBROLIZUMAB
     Indication: LUNG ADENOCARCINOMA
     Dosage: FIRST DOSE
     Dates: start: 2019
  4. KEYTRUDA [Suspect]
     Active Substance: PEMBROLIZUMAB
     Dosage: FOURTH DOSE
     Dates: start: 2019
  5. KEYTRUDA [Suspect]
     Active Substance: PEMBROLIZUMAB
     Dosage: SIXTH DOSE
     Dates: start: 20190612

REACTIONS (4)
  - Paraneoplastic pleural effusion [Recovered/Resolved]
  - Hypoalbuminaemia [Recovered/Resolved]
  - Product use in unapproved indication [Unknown]
  - Haemoptysis [Unknown]

NARRATIVE: CASE EVENT DATE: 2019
